FAERS Safety Report 17941339 (Version 1)
Quarter: 2020Q2

REPORT INFORMATION
  Report Type: Report from Study
  Country: US (occurrence: US)
  Receive Date: 20200624
  Receipt Date: 20200624
  Transmission Date: 20200714
  Serious: Yes (Hospitalization, Other)
  Sender: FDA-Public Use
  Company Number: US-ACTELION-A-NJ2018-184383

PATIENT
  Age: 28 Year
  Sex: Female
  Weight: 73.47 kg

DRUGS (7)
  1. VELETRI [Suspect]
     Active Substance: EPOPROSTENOL
     Dosage: 5 NG/KG, PER MIN
     Route: 042
  2. SILDENAFIL. [Suspect]
     Active Substance: SILDENAFIL
     Indication: PRODUCT USED FOR UNKNOWN INDICATION
     Route: 065
  3. VELETRI [Suspect]
     Active Substance: EPOPROSTENOL
     Indication: PULMONARY ARTERIAL HYPERTENSION
     Dosage: 17NG/KG, PER MIN
     Route: 042
  4. ADEMPAS [Concomitant]
     Active Substance: RIOCIGUAT
  5. LETAIRIS [Concomitant]
     Active Substance: AMBRISENTAN
  6. VELETRI [Suspect]
     Active Substance: EPOPROSTENOL
     Dosage: 9 NG/KG, PER MIN
     Route: 042
  7. VELETRI [Suspect]
     Active Substance: EPOPROSTENOL
     Dosage: 11 NG/KG, PER MIN
     Route: 042

REACTIONS (22)
  - Application site scab [Unknown]
  - Loss of consciousness [Unknown]
  - Heart rate increased [Unknown]
  - Flushing [Recovering/Resolving]
  - Muscle spasms [Unknown]
  - Diarrhoea [Unknown]
  - Concussion [Unknown]
  - Dyspepsia [Unknown]
  - Headache [Unknown]
  - Upper respiratory tract infection [Unknown]
  - Chest pain [Unknown]
  - Cardiac disorder [Unknown]
  - Fluid retention [Unknown]
  - Nausea [Unknown]
  - Pain in jaw [Unknown]
  - Tachycardia [Unknown]
  - Pain in extremity [Unknown]
  - Crying [Unknown]
  - Myalgia [Unknown]
  - Vomiting [Unknown]
  - Ear infection [Unknown]
  - Application site erythema [Unknown]

NARRATIVE: CASE EVENT DATE: 20181231
